FAERS Safety Report 5030406-1 (Version None)
Quarter: 2006Q2

REPORT INFORMATION
  Report Type: 
  Country: None (occurrence: None)
  Receive Date: 20060615
  Receipt Date: 20060607
  Transmission Date: 20061013
  Serious: Yes (Other)
  Sender: FDA-Public Use
  Company Number: S06-USA-02249-01

PATIENT
  Age: 85 Year
  Sex: Male

DRUGS (9)
  1. LEXAPRO [Suspect]
     Dosage: 10 MG QD PO
     Route: 048
     Dates: start: 20060524, end: 20060524
  2. LEXAPRO [Suspect]
     Dosage: 5 MG QD PO
     Route: 048
     Dates: start: 20060606
  3. LEXAPRO [Suspect]
     Dosage: 2.5 MG QD PO
     Route: 048
     Dates: start: 20060525, end: 20060605
  4. VYTORIN [Concomitant]
  5. PREVACID [Concomitant]
  6. WARFARIN SODIUM [Concomitant]
  7. PACERONE [Concomitant]
  8. AMBIEN [Concomitant]
  9. CENTRUM SILVER (MULTIVITAMIN/MULTIMINERAL) [Concomitant]

REACTIONS (7)
  - DIZZINESS [None]
  - DYSPNOEA [None]
  - FATIGUE [None]
  - FEELING ABNORMAL [None]
  - HEART RATE IRREGULAR [None]
  - PULMONARY CONGESTION [None]
  - SINUS CONGESTION [None]
